FAERS Safety Report 15780323 (Version 3)
Quarter: 2019Q1

REPORT INFORMATION
  Report Type: Report from Study
  Country: TW (occurrence: TW)
  Receive Date: 20190102
  Receipt Date: 20190129
  Transmission Date: 20190417
  Serious: Yes (Other)
  Sender: FDA-Public Use
  Company Number: TW-EMD SERONO-9062053

PATIENT
  Age: 9 Year
  Sex: Female
  Weight: 38 kg

DRUGS (2)
  1. SAIZEN [Suspect]
     Active Substance: SOMATROPIN
     Indication: GROWTH HORMONE DEFICIENCY
     Route: 058
     Dates: start: 20141008, end: 201812
  2. SAIZEN [Suspect]
     Active Substance: SOMATROPIN
     Dosage: DOSE RE INTRODUCED

REACTIONS (3)
  - Off label use [Recovered/Resolved]
  - Glycosylated haemoglobin increased [Unknown]
  - Blood glucose abnormal [Not Recovered/Not Resolved]

NARRATIVE: CASE EVENT DATE: 20141008
